FAERS Safety Report 6840608-7 (Version None)
Quarter: 2010Q3

REPORT INFORMATION
  Report Type: 
  Country: None (occurrence: None)
  Receive Date: 20100714
  Receipt Date: 20100706
  Transmission Date: 20110219
  Serious: Yes (Hospitalization)
  Sender: FDA-Public Use
  Company Number: B0665302A

PATIENT
  Age: 26 Year
  Weight: 74 kg

DRUGS (4)
  1. DIGOXIN [Suspect]
  2. UNKNOWN DRUG [Concomitant]
     Dates: start: 20030101
  3. WARFARIN [Concomitant]
  4. CONCOR [Concomitant]

REACTIONS (26)
  - ATRIAL FIBRILLATION [None]
  - ATROPHY [None]
  - BLOOD CREATININE INCREASED [None]
  - BLOOD UREA INCREASED [None]
  - BUNDLE BRANCH BLOCK RIGHT [None]
  - CONDITION AGGRAVATED [None]
  - CYANOSIS [None]
  - DRUG TOXICITY [None]
  - DYSPNOEA [None]
  - ELECTROCARDIOGRAM QT SHORTENED [None]
  - HEMIPARESIS [None]
  - HYPERAEMIA [None]
  - HYPERBILIRUBINAEMIA [None]
  - ILL-DEFINED DISORDER [None]
  - ISCHAEMIC STROKE [None]
  - JAUNDICE [None]
  - NAUSEA [None]
  - OEDEMA [None]
  - PALLOR [None]
  - PALPITATIONS [None]
  - PROTEIN TOTAL DECREASED [None]
  - PSYCHOTIC DISORDER [None]
  - SCAR [None]
  - SWELLING [None]
  - TRANSAMINASES INCREASED [None]
  - VOMITING [None]
